FAERS Safety Report 8871169 (Version 1)
Quarter: 2012Q4

REPORT INFORMATION
  Report Type: 
  Country: US (occurrence: US)
  Receive Date: 20121026
  Receipt Date: 20121026
  Transmission Date: 20130627
  Serious: No
  Sender: FDA-Public Use
  Company Number: US-AMGEN-USASP2012048017

PATIENT
  Age: 58 Year
  Sex: Female
  Weight: 79.37 kg

DRUGS (10)
  1. ENBREL [Suspect]
     Indication: PRODUCT USED FOR UNKNOWN INDICATION
     Dosage: 50 mg, qwk
     Route: 058
  2. METHOTREXATE [Concomitant]
     Dosage: 2.5 mg, UNK
  3. LIPITOR [Concomitant]
     Dosage: 10 mg, UNK
     Route: 048
  4. AVAPRO [Concomitant]
     Dosage: 75 mg, UNK
     Route: 048
  5. LANTUS [Concomitant]
     Dosage: 100 ml, UNK
     Route: 058
  6. METFORMIN [Concomitant]
     Dosage: 500 mg, UNK
     Route: 048
  7. FOLIC ACID [Concomitant]
     Dosage: 1 mg, UNK
     Route: 048
  8. NOVOLOG [Concomitant]
     Dosage: UNK
     Route: 058
  9. ASPIRIN [Concomitant]
     Dosage: 81 mg, UNK
     Route: 048
  10. LEVOXYL [Concomitant]
     Dosage: 25 mug, UNK
     Route: 048

REACTIONS (1)
  - Paraesthesia [Unknown]
